FAERS Safety Report 25274615 (Version 1)
Quarter: 2025Q2

REPORT INFORMATION
  Report Type: Spontaneous
  Country: US (occurrence: None)
  Receive Date: 20250506
  Receipt Date: 20250506
  Transmission Date: 20250716
  Serious: Yes (Hospitalization)
  Sender: FDA-CTU
  Company Number: None

PATIENT
  Age: 38 Year
  Sex: Female
  Weight: 56.25 kg

DRUGS (2)
  1. BOTOX [Suspect]
     Active Substance: ONABOTULINUMTOXINA
  2. POLYLACTIDE, L- [Suspect]
     Active Substance: POLYLACTIDE, L-

REACTIONS (13)
  - Throat tightness [None]
  - Heart rate increased [None]
  - Headache [None]
  - Dry mouth [None]
  - Tremor [None]
  - Asthenia [None]
  - Paraesthesia [None]
  - Vision blurred [None]
  - Photophobia [None]
  - Panic attack [None]
  - Vertigo [None]
  - Temperature intolerance [None]
  - Tinnitus [None]

NARRATIVE: CASE EVENT DATE: 20240524
